FAERS Safety Report 4768331-3 (Version None)
Quarter: 2005Q3

REPORT INFORMATION
  Report Type: 
  Country: None (occurrence: None)
  Receive Date: 20050906
  Receipt Date: 20050727
  Transmission Date: 20060218
  Serious: No
  Sender: FDA-Public Use
  Company Number: 2005-BP-12876BP

PATIENT
  Age: 70 Year
  Sex: Male

DRUGS (4)
  1. SPIRIVA [Suspect]
     Indication: CHRONIC OBSTRUCTIVE PULMONARY DISEASE
     Dosage: 18 MCG (18 MCG, QD), IH
     Route: 055
     Dates: start: 20040101
  2. RHINOCORT [Concomitant]
  3. SAW PLAMETTO (SERENOA REPENS) [Concomitant]
  4. CENTRUM SILVER (CENTRUM SILVER) [Concomitant]

REACTIONS (3)
  - DRY MOUTH [None]
  - GINGIVAL PAIN [None]
  - STOMATITIS [None]
